FAERS Safety Report 8605666-8 (Version None)
Quarter: 2012Q3

REPORT INFORMATION
  Report Type: 
  Country: None (occurrence: None)
  Receive Date: 20120820
  Receipt Date: 20120815
  Transmission Date: 20120928
  Serious: No
  Sender: FDA-Public Use
  Company Number: US-TEVA-354199USA

PATIENT
  Sex: Female

DRUGS (4)
  1. AZILECT [Suspect]
     Indication: PARKINSON'S DISEASE
     Dosage: .5 MILLIGRAM DAILY;
     Route: 048
     Dates: start: 20120814, end: 20120815
  2. SINEMET [Concomitant]
     Indication: PARKINSON'S DISEASE
     Route: 048
  3. METOPROLOL TARTRATE [Concomitant]
     Indication: HEART RATE IRREGULAR
     Route: 048
  4. MIRTAZAPINE [Concomitant]
     Indication: PARKINSON'S DISEASE
     Route: 048

REACTIONS (8)
  - INFLUENZA LIKE ILLNESS [None]
  - ASTHENIA [None]
  - HEADACHE [None]
  - HEART RATE INCREASED [None]
  - AGITATION [None]
  - DYSKINESIA [None]
  - HYPERHIDROSIS [None]
  - FEELING ABNORMAL [None]
